FAERS Safety Report 15657107 (Version 1)
Quarter: 2018Q4

REPORT INFORMATION
  Report Type: Spontaneous
  Country: DE (occurrence: DE)
  Receive Date: 20181126
  Receipt Date: 20181126
  Transmission Date: 20190205
  Serious: Yes (Life-Threatening, Hospitalization, Other)
  Sender: FDA-Public Use
  Company Number: DE-SAKK-2018SA155868AA

PATIENT
  Age: 11 Year
  Sex: Female
  Weight: 32 kg

DRUGS (4)
  1. UNACID [AMPICILLIN SODIUM;SULBACTAM SODIUM] [Concomitant]
     Indication: OPEN FRACTURE
     Dosage: 4.5 G, QD
     Route: 042
  2. NOVALGIN (METAMIZOLE SODIUM) [Concomitant]
     Active Substance: METAMIZOLE SODIUM
     Indication: PAIN
     Dosage: 2000 MG, QD
     Route: 042
  3. MOVICOL JUNIOR NEUTRAL [Concomitant]
     Indication: PRODUCT USED FOR UNKNOWN INDICATION
     Dosage: 2 DF, QD
     Route: 048
  4. CLEXANE [Suspect]
     Active Substance: ENOXAPARIN SODIUM
     Indication: THROMBOSIS PROPHYLAXIS
     Dosage: 20 MG, QD
     Route: 058

REACTIONS (3)
  - Heparin-induced thrombocytopenia [Recovering/Resolving]
  - Intracranial venous sinus thrombosis [Recovering/Resolving]
  - Abdominal pain [Recovering/Resolving]

NARRATIVE: CASE EVENT DATE: 20180129
